FAERS Safety Report 6681833-8 (Version None)
Quarter: 2010Q2

REPORT INFORMATION
  Report Type: 
  Country: None (occurrence: None)
  Receive Date: 20100414
  Receipt Date: 20100413
  Transmission Date: 20101027
  Serious: Yes (Hospitalization)
  Sender: FDA-Public Use
  Company Number: IT-WYE-G05595510

PATIENT
  Sex: Female

DRUGS (7)
  1. TAZOCIN [Suspect]
     Indication: SEPSIS
     Route: 042
     Dates: start: 20100114, end: 20100202
  2. VANCOMYCIN [Suspect]
     Indication: SEPSIS
     Route: 042
     Dates: start: 20100113, end: 20100202
  3. FOLINA [Concomitant]
     Indication: ANAEMIA FOLATE DEFICIENCY
     Dosage: 5 MG
     Route: 048
     Dates: start: 20100114
  4. CARDURA [Suspect]
     Indication: HYPERTENSION
     Route: 048
     Dates: start: 20080101, end: 20100206
  5. ENOXAPARIN SODIUM [Concomitant]
     Indication: ANTICOAGULANT THERAPY
     Dosage: 8000 IU
     Dates: start: 20080101
  6. DINTOINA [Suspect]
     Indication: EPILEPSY
     Route: 048
     Dates: start: 20100112, end: 20100127
  7. FLAGYL [Suspect]
     Indication: SEPSIS
     Route: 048
     Dates: start: 20100125, end: 20100202

REACTIONS (1)
  - DERMATITIS EXFOLIATIVE [None]
